FAERS Safety Report 8824893 (Version 4)
Quarter: 2013Q1

REPORT INFORMATION
  Report Type: Report from Study
  Country: IT (occurrence: IT)
  Receive Date: 20121004
  Receipt Date: 20130201
  Transmission Date: 20140127
  Serious: Yes (Hospitalization)
  Sender: FDA-Public Use
  Company Number: IT-009507513-1210ITA000330

PATIENT
  Age: 54 Year
  Sex: Female

DRUGS (4)
  1. BOCEPREVIR [Suspect]
     Indication: CHRONIC HEPATITIS C
     Dosage: 2400 MILLIGRAMS
     Route: 048
     Dates: start: 20120328, end: 20120926
  2. RIBAVIRIN [Suspect]
     Indication: CHRONIC HEPATITIS C
     Dosage: 1000 MILLIGRAMS
     Route: 048
     Dates: start: 20120301, end: 20120423
  3. RIBAVIRIN [Suspect]
     Dosage: 600 MG
     Route: 048
     Dates: start: 20120423, end: 20120926
  4. PEGASYS [Concomitant]
     Indication: HEPATITIS C
     Dosage: UNK UNK, QW
     Route: 058
     Dates: start: 20120301, end: 20120926

REACTIONS (3)
  - Right ventricular failure [Recovered/Resolved]
  - Dyspnoea [Recovered/Resolved]
  - Anaemia [Recovered/Resolved]
